FAERS Safety Report 10687480 (Version 1)
Quarter: 2014Q4

REPORT INFORMATION
  Report Type: Spontaneous
  Country: IT (occurrence: None)
  Receive Date: 20141230
  Receipt Date: 20141230
  Transmission Date: 20150529
  Serious: Yes (Other)
  Sender: FDA-Public Use
  Company Number: IPC201412-000698

PATIENT
  Age: 48 Year
  Sex: Female

DRUGS (7)
  1. ATENOLOL. [Suspect]
     Active Substance: ATENOLOL
     Indication: CORONARY ARTERY DISEASE
  2. EVEROLIMUS [Suspect]
     Active Substance: EVEROLIMUS
  3. LANSOPRAZOLE. [Suspect]
     Active Substance: LANSOPRAZOLE
     Indication: CORONARY ARTERY DISEASE
  4. ACETYLSALICYLIC ACID [Suspect]
     Active Substance: ASPIRIN
     Indication: CORONARY ARTERY DISEASE
  5. CLOPIDOGREL [Suspect]
     Active Substance: CLOPIDOGREL BISULFATE
     Indication: CORONARY ARTERY DISEASE
  6. RAMIPRIL. [Suspect]
     Active Substance: RAMIPRIL
     Indication: CORONARY ARTERY DISEASE
  7. ATORVASTATIN [Suspect]
     Active Substance: ATORVASTATIN
     Indication: CORONARY ARTERY DISEASE

REACTIONS (1)
  - Drug reaction with eosinophilia and systemic symptoms [None]
